FAERS Safety Report 5868469-3 (Version None)
Quarter: 2008Q3

REPORT INFORMATION
  Report Type: 
  Country: None (occurrence: None)
  Receive Date: 20080902
  Receipt Date: 20080902
  Transmission Date: 20090109
  Serious: No
  Sender: FDA-Public Use
  Company Number: None

PATIENT
  Age: 39 Year
  Sex: Female
  Weight: 78.9259 kg

DRUGS (3)
  1. AVELOX [Suspect]
     Indication: BRONCHITIS
     Dosage: 400 MG DAILY PO
     Route: 048
     Dates: start: 20080829, end: 20080829
  2. AVELOX [Suspect]
     Indication: CONDITION AGGRAVATED
     Dosage: 400 MG DAILY PO
     Route: 048
     Dates: start: 20080829, end: 20080829
  3. AVELOX [Suspect]
     Indication: MULTIPLE ALLERGIES
     Dosage: 400 MG DAILY PO
     Route: 048
     Dates: start: 20080829, end: 20080829

REACTIONS (3)
  - CHEST PAIN [None]
  - PELVIC PAIN [None]
  - RASH [None]
